FAERS Safety Report 8909212 (Version 1)
Quarter: 2012Q4

REPORT INFORMATION
  Report Type: Spontaneous
  Country: US (occurrence: None)
  Receive Date: 20121113
  Receipt Date: 20121113
  Transmission Date: 20130627
  Serious: Yes (Hospitalization)
  Sender: FDA-Public Use
  Company Number: None

PATIENT
  Age: 74 Year
  Sex: Male

DRUGS (6)
  1. LETAIRIS [Suspect]
     Indication: PULMONARY HYPERTENSION
     Dosage: 10mg daily oral
     Route: 048
     Dates: start: 20120927
  2. LETAIRIS [Suspect]
     Indication: MEDICATION DOSE DECREASED
     Dosage: 10mg daily oral
     Route: 048
     Dates: start: 20120927
  3. ALLOPURINOL [Concomitant]
  4. TAMSULOSIN [Concomitant]
  5. OMEPRAZOLE [Concomitant]
  6. NORCO [Concomitant]

REACTIONS (1)
  - Joint swelling [None]
